FAERS Safety Report 17065647 (Version 1)
Quarter: 2019Q4

REPORT INFORMATION
  Report Type: Spontaneous
  Country: DK (occurrence: DK)
  Receive Date: 20191122
  Receipt Date: 20191122
  Transmission Date: 20200122
  Serious: Yes (Death, Other)
  Sender: FDA-Public Use
  Company Number: DK-SEATTLE GENETICS-2019SGN04226

PATIENT
  Age: 13 Year
  Sex: Female

DRUGS (1)
  1. ADCETRIS [Suspect]
     Active Substance: BRENTUXIMAB VEDOTIN
     Indication: HODGKIN^S DISEASE
     Dosage: 1.2 MG/KG, QCYCLE
     Route: 065

REACTIONS (3)
  - Sepsis [Unknown]
  - Off label use [Unknown]
  - Multiple organ dysfunction syndrome [Fatal]
